FAERS Safety Report 17712037 (Version 1)
Quarter: 2020Q2

REPORT INFORMATION
  Report Type: Report from Study
  Country: RO (occurrence: RO)
  Receive Date: 20200427
  Receipt Date: 20200427
  Transmission Date: 20200714
  Serious: Yes (Other)
  Sender: FDA-Public Use
  Company Number: RO-ROCHE-2589530

PATIENT

DRUGS (3)
  1. PEGINTERFERON ALFA-2B [Suspect]
     Active Substance: PEGINTERFERON ALFA-2B
     Indication: CHRONIC HEPATITIS C
     Route: 065
  2. RIBAVIRIN. [Suspect]
     Active Substance: RIBAVIRIN
     Indication: CHRONIC HEPATITIS C
     Dosage: 1000 TO 1200 MG PER DAY
     Route: 065
  3. PEGINTERFERON ALFA-2A. [Suspect]
     Active Substance: PEGINTERFERON ALFA-2A
     Indication: CHRONIC HEPATITIS C
     Route: 065

REACTIONS (9)
  - Depression [Unknown]
  - Autoimmune thyroiditis [Unknown]
  - Thrombocytopenia [Unknown]
  - Hepatic failure [Unknown]
  - Neutropenia [Unknown]
  - Leukopenia [Unknown]
  - Pulmonary embolism [Unknown]
  - Anaemia [Unknown]
  - Blood disorder [Unknown]
